FAERS Safety Report 21121282 (Version 2)
Quarter: 2022Q3

REPORT INFORMATION
  Report Type: Spontaneous
  Country: US (occurrence: US)
  Receive Date: 20220722
  Receipt Date: 20220811
  Transmission Date: 20221026
  Serious: Yes (Other)
  Sender: FDA-Public Use
  Company Number: US-BIOVITRUM-2022US08833

PATIENT
  Age: 34 Year
  Sex: Female

DRUGS (2)
  1. DOPTELET [Suspect]
     Active Substance: AVATROMBOPAG MALEATE
     Indication: Immune thrombocytopenia
     Dates: start: 20220513
  2. DOPTELET [Suspect]
     Active Substance: AVATROMBOPAG MALEATE
     Dates: start: 20220602, end: 20220704

REACTIONS (7)
  - Arterial thrombosis [Unknown]
  - Myocardial ischaemia [Unknown]
  - Deep vein thrombosis [Unknown]
  - Embolism [Unknown]
  - Cyanosis [Recovered/Resolved]
  - Ejection fraction decreased [Unknown]
  - Pain in extremity [Recovered/Resolved]

NARRATIVE: CASE EVENT DATE: 20220623
